FAERS Safety Report 4392341-1 (Version None)
Quarter: 2004Q3

REPORT INFORMATION
  Report Type: 
  Country: None (occurrence: None)
  Receive Date: 20040702
  Receipt Date: 20040628
  Transmission Date: 20050211
  Serious: Yes (Death)
  Sender: FDA-Public Use
  Company Number: KII-2003-0011687

PATIENT
  Age: 37 Year
  Sex: Male

DRUGS (4)
  1. OXYCONTIN [Suspect]
     Indication: PAIN
     Dosage: 80 MG, BID
  2. OXYCODONE HCL [Suspect]
     Indication: PAIN
     Dosage: 15 MG
  3. XANAX [Suspect]
     Dosage: 2 MG, B ID
  4. REMERON [Suspect]
     Dosage: 15 MG, HS

REACTIONS (1)
  - SUDDEN DEATH [None]
